FAERS Safety Report 14006525 (Version 2)
Quarter: 2017Q3

REPORT INFORMATION
  Report Type: Spontaneous
  Country: FR (occurrence: FR)
  Receive Date: 20170925
  Receipt Date: 20170927
  Transmission Date: 20171128
  Serious: Yes (Other)
  Sender: FDA-Public Use
  Company Number: FR-STRIDES ARCOLAB LIMITED-2017SP012850

PATIENT

DRUGS (4)
  1. CEFTRIAXONE. [Suspect]
     Active Substance: CEFTRIAXONE
     Indication: POSTOPERATIVE WOUND INFECTION
     Dosage: UNK
     Route: 065
  2. METRONIDAZOLE. [Suspect]
     Active Substance: METRONIDAZOLE
     Indication: POSTOPERATIVE WOUND INFECTION
     Dosage: UNK
     Route: 065
  3. OFLOXACIN. [Suspect]
     Active Substance: OFLOXACIN
     Indication: CHOLECYSTITIS ACUTE
     Dosage: UNK
     Route: 065
  4. METRONIDAZOLE. [Suspect]
     Active Substance: METRONIDAZOLE
     Indication: CHOLECYSTITIS ACUTE
     Dosage: UNK
     Route: 065

REACTIONS (2)
  - Coagulation factor deficiency [Recovered/Resolved]
  - Off label use [Unknown]
